FAERS Safety Report 5829966-X (Version None)
Quarter: 2008Q3

REPORT INFORMATION
  Report Type: 
  Country: None (occurrence: None)
  Receive Date: 20080731
  Receipt Date: 20080731
  Transmission Date: 20090109
  Serious: No
  Sender: FDA-Public Use
  Company Number: None

PATIENT
  Age: 55 Year
  Sex: Male
  Weight: 81.19 kg

DRUGS (1)
  1. VARENICLINE [Suspect]
     Indication: SMOKING CESSATION THERAPY
     Dosage: 1 TAB BID PO
     Route: 048
     Dates: start: 20071114, end: 20071214

REACTIONS (5)
  - IRRITABILITY [None]
  - MOOD SWINGS [None]
  - PRURITUS [None]
  - RASH [None]
  - SKIN EXFOLIATION [None]
